FAERS Safety Report 20430194 (Version 1)
Quarter: 2022Q1

REPORT INFORMATION
  Report Type: Report from Study
  Country: US (occurrence: US)
  Receive Date: 20220204
  Receipt Date: 20220204
  Transmission Date: 20220424
  Serious: Yes (Hospitalization)
  Sender: FDA-Public Use
  Company Number: US-SERVIER-S19014331

PATIENT

DRUGS (16)
  1. ONCASPAR [Suspect]
     Active Substance: PEGASPARGASE
     Indication: B precursor type acute leukaemia
     Dosage: 3383 IU, ONE DOSE
     Route: 042
     Dates: start: 20191031, end: 20191031
  2. ONCASPAR [Suspect]
     Active Substance: PEGASPARGASE
     Dosage: 6526 IU, ONE DOSE
     Route: 042
     Dates: end: 20200423
  3. CYCLOPHOSPHAMIDE [Suspect]
     Active Substance: CYCLOPHOSPHAMIDE
     Indication: B precursor type acute leukaemia
     Dosage: 1690 MG, UNK
     Route: 042
     Dates: start: 20191017
  4. CYCLOPHOSPHAMIDE [Suspect]
     Active Substance: CYCLOPHOSPHAMIDE
     Dosage: 1630 MG, UNK
     Route: 042
     Dates: end: 20200402
  5. CYTARABINE [Suspect]
     Active Substance: CYTARABINE
     Indication: B precursor type acute leukaemia
     Dosage: 1016 MG, UNK
     Route: 042
     Dates: start: 20191027
  6. CYTARABINE [Suspect]
     Active Substance: CYTARABINE
     Dosage: 976 MG, UNK
     Route: 042
     Dates: end: 20200412
  7. MERCAPTOPURINE [Suspect]
     Active Substance: MERCAPTOPURINE
     Indication: B precursor type acute leukaemia
     Dosage: 1450 MG, UNK
     Route: 048
     Dates: start: 20191017, end: 20191030
  8. TN UNSPECIFIED [Concomitant]
     Indication: B precursor type acute leukaemia
     Dosage: 60 MG, UNK
     Route: 037
     Dates: start: 20191017, end: 20191107
  9. TN UNSPECIFIED [Concomitant]
     Dosage: 45 MG, UNK
     Route: 037
     Dates: end: 20200409
  10. TN UNSPECIFIED [Concomitant]
     Indication: B precursor type acute leukaemia
     Dosage: 60 MG, UNK
     Route: 042
     Dates: start: 20191017, end: 20191107
  11. TN UNSPECIFIED [Concomitant]
     Dosage: 4 MG, UNK
     Route: 042
     Dates: end: 20200423
  12. TN UNSPECIFIED [Concomitant]
     Indication: B precursor type acute leukaemia
     Dosage: 3.44 MG, UNK
     Route: 065
     Dates: start: 20190816, end: 20190916
  13. TN UNSPECIFIED [Concomitant]
     Dosage: 5.34 MG, UNK
     Route: 065
     Dates: end: 20190930
  14. TN UNSPECIFIED [Concomitant]
     Indication: B precursor type acute leukaemia
     Dosage: 224 MG
     Route: 065
     Dates: end: 20200322
  15. TN UNSPECIFIED [Concomitant]
     Indication: B precursor type acute leukaemia
     Dosage: 122.4 MG
     Route: 065
     Dates: end: 20200316
  16. TN UNSPECIFIED [Concomitant]
     Indication: B precursor type acute leukaemia
     Dosage: 1360  MG
     Route: 065
     Dates: end: 20200415

REACTIONS (3)
  - Aspartate aminotransferase increased [Recovered/Resolved]
  - Blood alkaline phosphatase increased [Recovered/Resolved]
  - Perirectal abscess [Recovering/Resolving]

NARRATIVE: CASE EVENT DATE: 20191109
